FAERS Safety Report 9819278 (Version 1)
Quarter: 2014Q1

REPORT INFORMATION
  Report Type: Spontaneous
  Country: IT (occurrence: IT)
  Receive Date: 20140115
  Receipt Date: 20140115
  Transmission Date: 20141002
  Serious: Yes (Other)
  Sender: FDA-Public Use
  Company Number: IT-ABBVIE-14P-083-1188418-00

PATIENT
  Age: 3 Year
  Sex: Male

DRUGS (2)
  1. VALPROIC ACID [Suspect]
     Indication: PETIT MAL EPILEPSY
  2. VALPROIC ACID [Suspect]

REACTIONS (2)
  - Condition aggravated [Recovered/Resolved]
  - Petit mal epilepsy [Recovered/Resolved]
